FAERS Safety Report 7968000 (Version 5)
Quarter: 2014Q2

REPORT INFORMATION
  Report Type: Report from Study
  Country: AU (occurrence: AU)
  Receive Date: 20110531
  Receipt Date: 20140409
  Transmission Date: 20141212
  Serious: Yes (Hospitalization)
  Sender: FDA-Public Use
  Company Number: AU-AMGEN-AUSCT2011027705

PATIENT
  Age: 69 Year
  Sex: Male
  Weight: 98 kg

DRUGS (20)
  1. PANITUMUMAB [Suspect]
     Indication: COLORECTAL CANCER
     Dosage: 588 MG, UNK
     Route: 065
     Dates: start: 20101130
  2. PANADEINE [Concomitant]
     Indication: PAIN
     Dosage: UNK
     Route: 048
     Dates: start: 20050212
  3. CANDESARTAN [Concomitant]
     Indication: HYPERTENSION
     Dosage: UNK UNK, UNK
     Route: 048
     Dates: start: 20070424
  4. FENTANYL [Concomitant]
     Indication: PAIN
     Dosage: UNK
     Route: 050
     Dates: start: 20101119
  5. CANESTEN [Concomitant]
     Indication: CANDIDA INFECTION
     Dosage: UNK UNK, UNK
     Route: 061
     Dates: start: 20101230
  6. CETIRIZINE [Concomitant]
     Indication: PRURITUS
     Dosage: UNK
     Route: 048
     Dates: start: 20101230
  7. QV [Concomitant]
     Indication: DRY SKIN
     Dosage: UNK
     Route: 061
     Dates: start: 20110308
  8. MAGMIN [Concomitant]
     Indication: HYPOMAGNESAEMIA
     Dosage: UNK UNK, UNK
     Route: 048
     Dates: start: 20110308
  9. MAGNESIUM SULPHATE [Concomitant]
     Indication: HYPOMAGNESAEMIA
     Dosage: 10 MMOL, UNK
     Route: 042
     Dates: start: 20110406, end: 20110503
  10. IMODIUM [Concomitant]
     Indication: DIARRHOEA
     Dosage: UNK
     Route: 048
     Dates: start: 20110423
  11. AUGMENTIN [Concomitant]
     Indication: INFECTION
     Dosage: UNK
     Route: 048
     Dates: start: 20100504
  12. CIPROFLOXACIN [Concomitant]
     Indication: INFECTION
     Dosage: UNK
     Route: 048
     Dates: start: 20100504
  13. GABAPENTIN [Concomitant]
     Indication: PAIN IN EXTREMITY
     Dosage: UNK
     Route: 048
     Dates: start: 200801
  14. PAROXETINE [Concomitant]
     Indication: DEPRESSION
     Dosage: UNK
     Route: 048
     Dates: start: 20091217
  15. PRAMIPEXOLE [Concomitant]
     Indication: RESTLESS LEGS SYNDROME
     Dosage: UNK
     Route: 048
     Dates: start: 200912
  16. AMITRIPTYLINE [Concomitant]
     Indication: PAIN
     Dosage: UNK
     Route: 048
     Dates: start: 20100408
  17. NEXIUM [Concomitant]
     Indication: GASTROOESOPHAGEAL REFLUX DISEASE
     Dosage: UNK
     Route: 048
     Dates: start: 20100408
  18. NEXIUM [Concomitant]
     Indication: DYSPEPSIA
  19. ENDONE [Concomitant]
     Indication: PAIN
     Dosage: UNK
     Route: 048
     Dates: start: 20081031
  20. MINOCYCLINE [Concomitant]
     Indication: DERMATITIS ACNEIFORM
     Route: 048
     Dates: start: 20110208

REACTIONS (1)
  - Atrial fibrillation [Recovered/Resolved]
